FAERS Safety Report 16120060 (Version 4)
Quarter: 2022Q4

REPORT INFORMATION
  Report Type: Report from Study
  Country: JP (occurrence: JP)
  Receive Date: 20190326
  Receipt Date: 20221003
  Transmission Date: 20230112
  Serious: Yes (Hospitalization)
  Sender: FDA-Public Use
  Company Number: JP-JT-EVA201900873GILEAD-001

PATIENT
  Age: 54 Year
  Sex: Male

DRUGS (34)
  1. EMTRICITABINE\TENOFOVIR [Suspect]
     Active Substance: EMTRICITABINE\TENOFOVIR
     Indication: HIV infection
     Dosage: 1 DOSAGE FORM, QD
     Route: 048
     Dates: start: 20170225, end: 20191023
  2. ISENTRESS [Suspect]
     Active Substance: RALTEGRAVIR POTASSIUM
     Indication: HIV infection
     Dosage: 800 MG, QD
     Route: 048
     Dates: start: 20170225, end: 20191023
  3. TRAMCET [Suspect]
     Active Substance: ACETAMINOPHEN\TRAMADOL
     Indication: Post herpetic neuralgia
     Dosage: UNK
     Route: 048
     Dates: start: 20190605, end: 20190814
  4. AZITHROMYCIN DIHYDRATE [Concomitant]
     Active Substance: AZITHROMYCIN DIHYDRATE
     Indication: Prophylaxis
     Dosage: UNK
     Route: 065
     Dates: start: 20170225, end: 20190313
  5. AZITHROMYCIN DIHYDRATE [Concomitant]
     Active Substance: AZITHROMYCIN DIHYDRATE
     Dosage: UNK
     Dates: start: 20190508, end: 20190619
  6. SULFAMETHOXAZOLE\TRIMETHOPRIM [Concomitant]
     Active Substance: SULFAMETHOXAZOLE\TRIMETHOPRIM
     Indication: Prophylaxis
     Route: 048
     Dates: start: 20170225, end: 20170802
  7. FLUCONAZOLE [Concomitant]
     Active Substance: FLUCONAZOLE
     Route: 065
     Dates: start: 20170225, end: 20171017
  8. NEXIUM [Concomitant]
     Active Substance: ESOMEPRAZOLE MAGNESIUM
     Indication: Prophylaxis
     Route: 048
     Dates: start: 20170225, end: 20170802
  9. LINAGLIPTIN [Concomitant]
     Active Substance: LINAGLIPTIN
     Dosage: UNK
     Route: 048
     Dates: start: 20170225
  10. REPAGLINIDE [Concomitant]
     Active Substance: REPAGLINIDE
     Dosage: UNK
     Route: 048
     Dates: start: 20170225, end: 20190910
  11. METHOTREXATE [Concomitant]
     Active Substance: METHOTREXATE
     Route: 065
     Dates: start: 20170225, end: 20170614
  12. ONCOVIN [Concomitant]
     Active Substance: VINCRISTINE SULFATE
     Route: 042
     Dates: start: 20170225, end: 20170619
  13. CYTARABINE [Concomitant]
     Active Substance: CYTARABINE
     Route: 065
     Dates: start: 20170225, end: 20170614
  14. MAXIPIME [Concomitant]
     Active Substance: CEFEPIME HYDROCHLORIDE
     Route: 042
     Dates: start: 20170225, end: 20170703
  15. VALGANCICLOVIR [Concomitant]
     Active Substance: VALGANCICLOVIR
     Indication: Lymphadenitis viral
     Route: 048
     Dates: start: 20170225, end: 20170329
  16. VALGANCICLOVIR [Concomitant]
     Active Substance: VALGANCICLOVIR
     Indication: Lymphadenopathy
     Dosage: UNK
     Dates: start: 20190320, end: 20190328
  17. PREDNISOLONE [Concomitant]
     Active Substance: PREDNISOLONE
     Route: 065
     Dates: start: 20170225, end: 20170620
  18. HUMULIN R [Concomitant]
     Active Substance: INSULIN HUMAN
     Route: 065
     Dates: start: 20170225, end: 20170703
  19. LENOGRASTIM [Concomitant]
     Active Substance: LENOGRASTIM
     Route: 042
     Dates: start: 20170225, end: 20170703
  20. MOSAPRIDE CITRATE DIHYDRATE [Concomitant]
     Active Substance: MOSAPRIDE CITRATE DIHYDRATE
     Route: 048
     Dates: start: 20170225, end: 20170228
  21. DOXORUBICIN HYDROCHLORIDE [Concomitant]
     Active Substance: DOXORUBICIN HYDROCHLORIDE
     Route: 065
     Dates: start: 20170225, end: 20170619
  22. ETOPOSIDE [Concomitant]
     Active Substance: ETOPOSIDE
     Route: 041
     Dates: start: 20170225, end: 20170619
  23. RITUXAN [Concomitant]
     Active Substance: RITUXIMAB
     Route: 041
     Dates: start: 20170225, end: 20170615
  24. DECADRON [Concomitant]
     Active Substance: DEXAMETHASONE
     Route: 065
     Dates: start: 20170307, end: 20170328
  25. MEYLON [Concomitant]
     Active Substance: SODIUM BICARBONATE
     Indication: Prophylaxis
     Route: 042
     Dates: start: 20170307, end: 20170331
  26. ALOXI [Concomitant]
     Active Substance: PALONOSETRON HYDROCHLORIDE
     Indication: Prophylaxis
     Route: 042
     Dates: start: 20170307, end: 20170328
  27. DIAMOX SEQUELS [Concomitant]
     Active Substance: ACETAZOLAMIDE
     Indication: Prophylaxis
     Route: 065
     Dates: start: 20170307, end: 20170330
  28. LEUCOVORIN [Concomitant]
     Active Substance: LEUCOVORIN
     Indication: Prophylaxis
     Route: 065
     Dates: start: 20170308, end: 20170330
  29. POLARAMINE [Concomitant]
     Active Substance: DEXCHLORPHENIRAMINE MALEATE
     Indication: Prophylaxis
     Route: 065
     Dates: start: 20170313, end: 20170615
  30. HYDROCORTISONE SODIUM PHOSPHATE [Concomitant]
     Active Substance: HYDROCORTISONE SODIUM PHOSPHATE
     Indication: Prophylaxis
     Route: 042
     Dates: start: 20170417, end: 20170614
  31. GRANISETRON [Concomitant]
     Active Substance: GRANISETRON
     Indication: Prophylaxis
     Route: 065
     Dates: start: 20170419, end: 20170620
  32. CYCLOPHOSPHAMIDE [Concomitant]
     Active Substance: CYCLOPHOSPHAMIDE
     Route: 065
     Dates: start: 20170423, end: 20170620
  33. GARENOXACIN MESYLATE [Concomitant]
     Active Substance: GARENOXACIN MESYLATE
     Indication: Prophylaxis
     Route: 048
     Dates: start: 20170501, end: 20170731
  34. ATOVAQUONE [Concomitant]
     Active Substance: ATOVAQUONE
     Indication: Prophylaxis
     Route: 048
     Dates: start: 20170727, end: 20170802

REACTIONS (19)
  - Agranulocytosis [Recovering/Resolving]
  - Cytomegalovirus chorioretinitis [Recovering/Resolving]
  - Lymphadenopathy [Recovered/Resolved]
  - Herpes zoster [Recovered/Resolved]
  - Insomnia [Recovering/Resolving]
  - Proctalgia [Recovering/Resolving]
  - Nasopharyngitis [Recovering/Resolving]
  - Haemorrhoids [Recovering/Resolving]
  - Folliculitis [Recovering/Resolving]
  - Stomatitis [Recovering/Resolving]
  - Arthralgia [Recovering/Resolving]
  - Eczema [Recovering/Resolving]
  - Dermatophytosis of nail [Recovering/Resolving]
  - Hypertriglyceridaemia [Recovering/Resolving]
  - Bronchitis [Recovering/Resolving]
  - Lymphadenitis viral [Recovered/Resolved]
  - Diarrhoea [Recovering/Resolving]
  - Post herpetic neuralgia [Recovered/Resolved]
  - Nausea [Recovered/Resolved]

NARRATIVE: CASE EVENT DATE: 20170226
